FAERS Safety Report 7805625-9 (Version None)
Quarter: 2011Q4

REPORT INFORMATION
  Report Type: 
  Country: None (occurrence: None)
  Receive Date: 20111010
  Receipt Date: 20111005
  Transmission Date: 20120403
  Serious: Yes (Death, Other)
  Sender: FDA-Public Use
  Company Number: US-CELGENEUS-163-21880-11100703

PATIENT
  Sex: Male

DRUGS (14)
  1. SENOKOT [Concomitant]
     Route: 065
  2. PLAVIX [Concomitant]
     Dosage: 75 MILLIGRAM
     Route: 065
     Dates: start: 20110511
  3. INSULIN [Concomitant]
     Dosage: SLIDING SCALE
     Route: 065
  4. BUMEX [Concomitant]
     Dosage: 1 MILLIGRAM
     Route: 065
  5. NEURONTIN [Concomitant]
     Dosage: 100 MILLIGRAM
     Route: 065
  6. MIRALAX [Concomitant]
     Route: 065
  7. DILAUDID [Concomitant]
     Indication: PAIN
     Dosage: 2 MILLIGRAM
     Route: 065
     Dates: start: 20110401
  8. MEGACE [Concomitant]
     Dosage: 10 MILLILITER
     Route: 065
  9. RESTORIL [Concomitant]
     Indication: SLEEP DISORDER
     Dosage: 15 MILLIGRAM
     Route: 065
  10. PROTONIX [Concomitant]
     Dosage: 40 MILLIGRAM
     Route: 065
     Dates: start: 20110511
  11. REVLIMID [Suspect]
     Indication: MULTIPLE MYELOMA
     Dosage: 25 MILLIGRAM
     Route: 048
     Dates: start: 20110705, end: 20110708
  12. IMDUR [Concomitant]
     Dosage: 30 MILLIGRAM
     Route: 065
  13. LEXAPRO [Concomitant]
     Dosage: 10 MILLIGRAM
     Route: 065
     Dates: start: 20110511
  14. GLUCOPHAGE [Concomitant]
     Dosage: 500 MILLIGRAM
     Route: 065

REACTIONS (11)
  - RECTAL HAEMORRHAGE [None]
  - PLATELET COUNT DECREASED [None]
  - SYNCOPE [None]
  - CONFUSIONAL STATE [None]
  - TENDERNESS [None]
  - PAIN IN EXTREMITY [None]
  - MULTIPLE MYELOMA [None]
  - DECREASED APPETITE [None]
  - LETHARGY [None]
  - DYSPNOEA [None]
  - ASTHENIA [None]
